FAERS Safety Report 7186467-7 (Version None)
Quarter: 2010Q4

REPORT INFORMATION
  Report Type: 
  Country: None (occurrence: None)
  Receive Date: 20101222
  Receipt Date: 20101216
  Transmission Date: 20110411
  Serious: Yes (Hospitalization)
  Sender: FDA-Public Use
  Company Number: FR-GILEAD-2010-0034535

PATIENT
  Sex: Male

DRUGS (10)
  1. EMTRIVA [Suspect]
     Indication: HIV INFECTION
     Route: 048
     Dates: end: 20100226
  2. NORVIR [Concomitant]
  3. ZIAGEN [Concomitant]
  4. TELZIR [Concomitant]
  5. KARDEGIC [Concomitant]
  6. FLUDEX [Concomitant]
  7. PERMIXON [Concomitant]
  8. ATARAX [Concomitant]
  9. CARDENSIEL [Concomitant]
  10. NEURONTIN [Concomitant]

REACTIONS (1)
  - CHOLESTASIS [None]
